FAERS Safety Report 10020089 (Version 1)
Quarter: 2014Q1

REPORT INFORMATION
  Report Type: Spontaneous
  Country: US (occurrence: US)
  Receive Date: 20140318
  Receipt Date: 20140318
  Transmission Date: 20141002
  Serious: Yes (Death)
  Sender: FDA-Public Use
  Company Number: US-ROCHE-1367718

PATIENT
  Age: 79 Year
  Sex: Female
  Weight: 111.68 kg

DRUGS (1)
  1. XELODA [Suspect]
     Indication: BREAST CANCER FEMALE
     Route: 048
     Dates: start: 20140228

REACTIONS (1)
  - Death [Fatal]
